FAERS Safety Report 20290500 (Version 1)
Quarter: 2022Q1

REPORT INFORMATION
  Report Type: Spontaneous
  Country: US (occurrence: None)
  Receive Date: 20220103
  Receipt Date: 20220103
  Transmission Date: 20220423
  Serious: Yes (Other)
  Sender: FDA-Public Use
  Company Number: None

PATIENT
  Age: 41 Year
  Sex: Female

DRUGS (1)
  1. TENOFOVIR DISOPROXIL FUMARATE [Suspect]
     Active Substance: TENOFOVIR DISOPROXIL FUMARATE
     Indication: Hepatitis B
     Dosage: FREQUENCY : DAILY;?
     Route: 048
     Dates: start: 20211215, end: 20220103

REACTIONS (2)
  - Back pain [None]
  - Product substitution issue [None]

NARRATIVE: CASE EVENT DATE: 20211215
